FAERS Safety Report 7846291-6 (Version None)
Quarter: 2011Q4

REPORT INFORMATION
  Report Type: 
  Country: None (occurrence: None)
  Receive Date: 20111025
  Receipt Date: 20111021
  Transmission Date: 20120403
  Serious: Yes (Hospitalization)
  Sender: FDA-Public Use
  Company Number: MX-ROCHE-1006379

PATIENT
  Sex: Female
  Weight: 66 kg

DRUGS (10)
  1. PREGABALIN [Concomitant]
     Route: 048
  2. ALPRAZOLAM [Concomitant]
     Indication: DEPRESSION
     Route: 048
  3. LEUCOVORIN CALCIUM [Concomitant]
     Route: 042
     Dates: start: 20100920, end: 20110601
  4. BUPRENORPHINE [Concomitant]
     Route: 062
  5. ACETAMINOPHEN [Concomitant]
     Route: 048
  6. OXALIPLATIN [Concomitant]
     Route: 042
     Dates: start: 20100920, end: 20110601
  7. ENALAPRIL MALEATE [Concomitant]
     Indication: HYPERTENSION
     Route: 048
  8. AVASTIN [Suspect]
     Indication: COLON CANCER RECURRENT
     Route: 042
     Dates: start: 20101130, end: 20110826
  9. ESCITALOPRAM [Concomitant]
     Indication: DEPRESSION
     Route: 048
  10. FLUOROURACIL [Concomitant]
     Indication: COLON CANCER RECURRENT
     Route: 042
     Dates: start: 20100920, end: 20110601

REACTIONS (3)
  - ELECTROLYTE IMBALANCE [None]
  - RENAL FAILURE ACUTE [None]
  - METABOLIC ACIDOSIS [None]
